FAERS Safety Report 8404143-7 (Version None)
Quarter: 2012Q2

REPORT INFORMATION
  Report Type: 
  Country: None (occurrence: None)
  Receive Date: 20120601
  Receipt Date: 20120509
  Transmission Date: 20120825
  Serious: Yes (Death)
  Sender: FDA-Public Use
  Company Number: FR-PFIZER INC-FR-WYE-G05543210

PATIENT
  Age: 81 Year
  Sex: Male

DRUGS (6)
  1. ASPIRIN [Suspect]
     Dosage: 160.0 MG, 1X/DAY
     Route: 048
  2. EFFEXOR XR [Suspect]
     Dosage: 75.0 MG, 1X/DAY
     Route: 048
  3. ATARAX [Suspect]
     Dosage: 12.5 MG, 2X/DAY
     Route: 048
  4. PERINDOPRIL ERBUMINE [Suspect]
     Dosage: 4.0 MG, 1X/DAY
     Route: 048
  5. TRIHEXYPHENIDYL [Suspect]
     Dosage: 2.0 MG, 1X/DAY
     Route: 048
  6. RISPERDAL [Suspect]
     Dosage: 1.0 MG, 2X/DAY
     Route: 048

REACTIONS (1)
  - DEATH [None]
